FAERS Safety Report 19883319 (Version 2)
Quarter: 2021Q4

REPORT INFORMATION
  Report Type: Report from Study
  Country: CO (occurrence: CO)
  Receive Date: 20210926
  Receipt Date: 20211028
  Transmission Date: 20220303
  Serious: Yes (Hospitalization, Other)
  Sender: FDA-Public Use
  Company Number: CO-AMGEN-COLSL2021145756

PATIENT
  Age: 51 Year
  Sex: Female

DRUGS (2)
  1. NPLATE [Suspect]
     Active Substance: ROMIPLOSTIM
     Indication: Immune thrombocytopenia
     Dosage: 420 MICROGRAM, QWK
     Route: 058
     Dates: start: 20170110
  2. NPLATE [Suspect]
     Active Substance: ROMIPLOSTIM
     Dosage: 340 MICROGRAM, QWK
     Route: 058
     Dates: start: 20210907

REACTIONS (1)
  - Thrombocytosis [Recovering/Resolving]

NARRATIVE: CASE EVENT DATE: 20210901
